FAERS Safety Report 8785168 (Version 1)
Quarter: 2012Q4

REPORT INFORMATION
  Report Type: Spontaneous
  Country: US (occurrence: None)
  Receive Date: 20120831
  Receipt Date: 20120831
  Transmission Date: 20130627
  Serious: No
  Sender: FDA-Public Use
  Company Number: 2012-00151

PATIENT
  Age: 51 Year
  Sex: Male

DRUGS (3)
  1. ZICAM COLD REMEDY [Suspect]
     Indication: COLD
     Dosage: Mouth spray every 3 hours
     Dates: start: 20120826, end: 20120827
  2. HYDROCHLOROTHIAZIDE [Concomitant]
  3. ADVOCOR [Concomitant]

REACTIONS (3)
  - Ageusia [None]
  - Nasopharyngitis [None]
  - Lower respiratory tract infection [None]
